FAERS Safety Report 5255810-8 (Version None)
Quarter: 2007Q1

REPORT INFORMATION
  Report Type: 
  Country: None (occurrence: None)
  Receive Date: 20070301
  Receipt Date: 20070215
  Transmission Date: 20070707
  Serious: Yes (Disabling, Congenital Anomaly)
  Sender: FDA-Public Use
  Company Number: CIP07000354

PATIENT
  Age: 19 Day
  Sex: Male
  Weight: 3.4 kg

DRUGS (6)
  1. FURADANTINE (NITROFURANTION MACROCRYSTALS) CAPSULE, UNKNOWNMG [Suspect]
     Dosage: TRANSPLACENTAL
     Route: 064
     Dates: start: 20051004, end: 20051014
  2. PARACETAMOL(PARACETAMOL) TABLET [Suspect]
     Dosage: TRANSPLACENTAL
     Route: 064
     Dates: start: 20050615, end: 20060415
  3. CORTANCYL(PREDNISONE) TABLET [Suspect]
     Dosage: 5 MG TO 15 MG DAILY, TRANSPLACENTAL
     Route: 064
     Dates: start: 20050515, end: 20060515
  4. UTEPLEX(URIDINE TRIPHOSPHATE SODIUM) SOLUTION [Suspect]
     Dosage: 3 DF DAILY, TRANSPLACENTAL
     Route: 064
     Dates: start: 20060313, end: 20060327
  5. TARDYFERON 89(FOLIC ACID, FERROUS SULFATE) TABLET [Suspect]
     Dosage: TRANSPLACENTAL
     Route: 064
     Dates: start: 20051224, end: 20060415
  6. UVEDOSE(COLECALCIFEROL) SOLUTION [Suspect]
     Dosage: 10000 UNIT, 1 ONLY, TRANSPLACENTAL
     Route: 064
     Dates: start: 20060219, end: 20060219

REACTIONS (3)
  - CONGENITAL ANOMALY [None]
  - DRUG EXPOSURE DURING PREGNANCY [None]
  - PYLORIC STENOSIS [None]
